FAERS Safety Report 25280513 (Version 3)
Quarter: 2025Q2

REPORT INFORMATION
  Report Type: Report from Study
  Country: US (occurrence: US)
  Receive Date: 20250508
  Receipt Date: 20250620
  Transmission Date: 20250716
  Serious: No
  Sender: ACADIA PHARMACEUTICALS
  Company Number: US-ACADIA PHARMACEUTICALS INC.-ACA-2025-TRF-005040

PATIENT
  Age: 39 Year
  Sex: Female
  Weight: 56.236 kg

DRUGS (3)
  1. DAYBUE [Suspect]
     Active Substance: TROFINETIDE
     Indication: Rett syndrome
     Dosage: 60 MILLILITER, BID
     Route: 048
  2. DAYBUE [Suspect]
     Active Substance: TROFINETIDE
     Dosage: DOSE HIGHER THAN 50ML, BID
     Route: 048
  3. DEXTRIN\WHEAT [Concomitant]
     Active Substance: ICODEXTRIN\WHEAT

REACTIONS (4)
  - Gastritis [Unknown]
  - Diarrhoea [Not Recovered/Not Resolved]
  - Weight decreased [Unknown]
  - Underdose [Unknown]

NARRATIVE: CASE EVENT DATE: 20250411
